FAERS Safety Report 7273235-0 (Version None)
Quarter: 2011Q1

REPORT INFORMATION
  Report Type: 
  Country: None (occurrence: None)
  Receive Date: 20110203
  Receipt Date: 20110127
  Transmission Date: 20110831
  Serious: Yes (Death, Hospitalization)
  Sender: FDA-Public Use
  Company Number: FR-ELI_LILLY_AND_COMPANY-FR201101006706

PATIENT
  Sex: Male

DRUGS (5)
  1. ZYPREXA [Suspect]
     Indication: HISTRIONIC PERSONALITY DISORDER
     Dosage: 5 MG, UNK
     Route: 048
     Dates: start: 20101110, end: 20101115
  2. CARDENSIEL [Concomitant]
     Dosage: 10 MG, UNK
  3. LASIX [Concomitant]
     Dosage: 20 MG, UNK
  4. PREVISCAN [Concomitant]
  5. TRIATEC [Concomitant]
     Dosage: 2.5 MG, UNK

REACTIONS (5)
  - ANAEMIA [None]
  - THROMBOCYTOPENIA [None]
  - INFLAMMATION [None]
  - CONGESTIVE CARDIOMYOPATHY [None]
  - CARDIOGENIC SHOCK [None]
